FAERS Safety Report 6341304-5 (Version None)
Quarter: 2009Q3

REPORT INFORMATION
  Report Type: 
  Country: None (occurrence: None)
  Receive Date: 20090904
  Receipt Date: 20090826
  Transmission Date: 20100115
  Serious: Yes (Hospitalization)
  Sender: FDA-Public Use
  Company Number: US-ELI_LILLY_AND_COMPANY-US200908005676

PATIENT
  Sex: Male
  Weight: 99.773 kg

DRUGS (5)
  1. BYETTA [Suspect]
     Indication: TYPE 2 DIABETES MELLITUS
     Dosage: 5 UG, 2/D
     Route: 058
     Dates: start: 20070101
  2. BYETTA [Suspect]
     Dosage: 10 UG, 2/D
     Route: 058
  3. METFORMIN HCL [Concomitant]
  4. GLIPIZIDE [Concomitant]
  5. ACTOS [Concomitant]

REACTIONS (7)
  - DECREASED APPETITE [None]
  - DEVICE MISUSE [None]
  - DRUG DOSE OMISSION [None]
  - ESCHERICHIA BACTERAEMIA [None]
  - NAUSEA [None]
  - POOR QUALITY DRUG ADMINISTERED [None]
  - VOMITING [None]
